FAERS Safety Report 8896623 (Version 1)
Quarter: 2012Q4

REPORT INFORMATION
  Report Type: Spontaneous
  Country: US (occurrence: None)
  Receive Date: 20121107
  Receipt Date: 20121107
  Transmission Date: 20130627
  Serious: Yes (Life-Threatening)
  Sender: FDA-Public Use
  Company Number: None

PATIENT
  Age: 67 Year
  Sex: Female
  Weight: 77.11 kg

DRUGS (1)
  1. DIPHEN/ATROP 2.5 MG [Suspect]
     Indication: DIARRHEA
     Dosage: 2 tablets 4/day mouth 
10-14-20
     Route: 048

REACTIONS (9)
  - Dizziness [None]
  - Movement disorder [None]
  - Hyperhidrosis [None]
  - Dyspnoea [None]
  - Apparent death [None]
  - Vomiting [None]
  - Feeling cold [None]
  - Pain [None]
  - Body temperature decreased [None]
